FAERS Safety Report 15606224 (Version 1)
Quarter: 2018Q4

REPORT INFORMATION
  Report Type: Spontaneous
  Country: US (occurrence: US)
  Receive Date: 20181106
  Receipt Date: 20181106
  Transmission Date: 20190205
  Serious: Yes (Hospitalization)
  Sender: FDA-Public Use
  Company Number: None

PATIENT
  Age: 67 Year
  Sex: Male
  Weight: 123.83 kg

DRUGS (2)
  1. PRAZOSIN. [Suspect]
     Active Substance: PRAZOSIN
     Indication: POSTPARTUM STRESS DISORDER
     Route: 048
     Dates: start: 20170626, end: 20180901
  2. CLONAZEPAM. [Suspect]
     Active Substance: CLONAZEPAM
     Indication: RAPID EYE MOVEMENTS SLEEP ABNORMAL
     Route: 048
     Dates: start: 20180830

REACTIONS (6)
  - Sedation [None]
  - Hypotension [None]
  - Confusional state [None]
  - Mental status changes [None]
  - Dizziness [None]
  - Disorientation [None]

NARRATIVE: CASE EVENT DATE: 20180901
